FAERS Safety Report 6877046-7 (Version None)
Quarter: 2010Q3

REPORT INFORMATION
  Report Type: 
  Country: None (occurrence: None)
  Receive Date: 20100727
  Receipt Date: 20100727
  Transmission Date: 20110219
  Serious: Yes (Hospitalization)
  Sender: FDA-Public Use
  Company Number: None

PATIENT
  Age: 52 Year
  Sex: Female
  Weight: 82 kg

DRUGS (1)
  1. BACTRIM [Suspect]
     Indication: BRONCHITIS
     Dosage: ORAL 047
     Route: 048

REACTIONS (9)
  - ABDOMINAL PAIN [None]
  - COAGULOPATHY [None]
  - DIZZINESS [None]
  - JAUNDICE [None]
  - MENTAL STATUS CHANGES [None]
  - NAUSEA [None]
  - PANCYTOPENIA [None]
  - RASH [None]
  - RENAL FAILURE [None]
